FAERS Safety Report 5339356-4 (Version None)
Quarter: 2007Q2

REPORT INFORMATION
  Report Type: 
  Country: None (occurrence: None)
  Receive Date: 20070322
  Receipt Date: 20070219
  Transmission Date: 20071010
  Serious: Yes (Other)
  Sender: FDA-Public Use
  Company Number: 200710001BCC

PATIENT
  Age: 71 Year
  Sex: Male
  Weight: 71.6683 kg

DRUGS (3)
  1. ALEVE (CAPLET) [Suspect]
     Indication: DRUG USE FOR UNKNOWN INDICATION
     Dosage: 220 MG, BID, ORAL A FEW MONTHS
     Route: 048
  2. ZEFIRLUKAST [Concomitant]
  3. AEROBID [Concomitant]

REACTIONS (3)
  - ASTHMA [None]
  - DYSPNOEA [None]
  - PULMONARY CONGESTION [None]
